FAERS Safety Report 6696383-2 (Version None)
Quarter: 2010Q2

REPORT INFORMATION
  Report Type: 
  Country: None (occurrence: None)
  Receive Date: 20100426
  Receipt Date: 20100414
  Transmission Date: 20101027
  Serious: Yes (Other)
  Sender: FDA-Public Use
  Company Number: TR-ELI_LILLY_AND_COMPANY-TR201001002104

PATIENT

DRUGS (5)
  1. HUMULIN 70/30 [Suspect]
     Indication: GESTATIONAL DIABETES
     Dosage: 12 IU, EACH MORNING
     Route: 064
     Dates: start: 20090701, end: 20091027
  2. HUMULIN 70/30 [Suspect]
     Dosage: 7 IU, EACH EVENING
     Route: 064
     Dates: start: 20090701, end: 20091027
  3. LANSOR [Concomitant]
     Route: 064
  4. TALCID [Concomitant]
     Route: 064
  5. CALCIMAX D3                        /01606701/ [Concomitant]
     Dosage: UNK UNK, DAILY (1/D)
     Route: 064

REACTIONS (5)
  - DRUG EXPOSURE DURING PREGNANCY [None]
  - HYPOGLYCAEMIA NEONATAL [None]
  - POLYHYDRAMNIOS [None]
  - PREMATURE BABY [None]
  - UMBILICAL CORD ABNORMALITY [None]
